FAERS Safety Report 8129829-3 (Version None)
Quarter: 2012Q1

REPORT INFORMATION
  Report Type: 
  Country: None (occurrence: None)
  Receive Date: 20120103
  Receipt Date: 20111118
  Transmission Date: 20120608
  Serious: No
  Sender: FDA-Public Use
  Company Number: AE-2011-003780

PATIENT
  Age: 41 Year
  Sex: Female
  Weight: 67.1324 kg

DRUGS (8)
  1. PEGASYS [Concomitant]
  2. RIBAPAK (RIBAVIRIN) [Concomitant]
  3. CLONAZEPAM [Concomitant]
  4. NEXIUM [Concomitant]
  5. DICYCLOMINE [Concomitant]
  6. INCIVEK [Suspect]
     Dosage: 2250 MG (750 MG, 1 IN 8 HR), ORAL
     Route: 048
     Dates: start: 20111022
  7. TOPROL-XL [Concomitant]
  8. NORCO [Concomitant]

REACTIONS (2)
  - NAUSEA [None]
  - DIARRHOEA [None]
